FAERS Safety Report 15256749 (Version 1)
Quarter: 2018Q3

REPORT INFORMATION
  Report Type: Spontaneous
  Country: JP (occurrence: JP)
  Receive Date: 20180808
  Receipt Date: 20180808
  Transmission Date: 20181010
  Serious: Yes (Death, Other)
  Sender: FDA-Public Use
  Company Number: JP-SAKK-2018SA175075AA

PATIENT
  Age: 74 Year
  Sex: Male
  Weight: 62 kg

DRUGS (11)
  1. BISOPROLOL [Concomitant]
     Active Substance: BISOPROLOL
     Indication: HYPERTENSION
     Dosage: 2.5 MG, QD
     Route: 048
     Dates: start: 20160628, end: 20180624
  2. ROZEREM [Concomitant]
     Active Substance: RAMELTEON
     Indication: INSOMNIA
     Dosage: 8 MG, QD
     Route: 048
     Dates: start: 20160628, end: 20180624
  3. RANITIDINE. [Concomitant]
     Active Substance: RANITIDINE
     Indication: PRODUCT USED FOR UNKNOWN INDICATION
     Route: 065
  4. JEVTANA [Suspect]
     Active Substance: CABAZITAXEL
     Indication: HORMONE-REFRACTORY PROSTATE CANCER
     Dosage: 41 MG, 1X
     Route: 058
     Dates: start: 20180619
  5. TAKECAB [Concomitant]
     Active Substance: VONOPRAZAN FUMURATE
     Indication: GASTRIC ULCER
     Dosage: 20 MG, QD
     Route: 048
     Dates: start: 20171125, end: 20180624
  6. JEVTANA [Suspect]
     Active Substance: CABAZITAXEL
     Indication: METASTASES TO BONE
  7. POLARAMINE [Concomitant]
     Active Substance: DEXCHLORPHENIRAMINE MALEATE
     Indication: PRODUCT USED FOR UNKNOWN INDICATION
     Route: 065
  8. MS CONTIN [Concomitant]
     Active Substance: MORPHINE SULFATE
     Indication: CANCER PAIN
     Dosage: 20 MG, BID
     Route: 048
     Dates: start: 20160615, end: 20180624
  9. LOPURIC [Concomitant]
     Indication: CANCER PAIN
     Dosage: 60 MG, TID
     Route: 048
     Dates: start: 20160628, end: 20180624
  10. DEXART [Concomitant]
     Active Substance: DEXAMETHASONE SODIUM PHOSPHATE
     Indication: PRODUCT USED FOR UNKNOWN INDICATION
     Route: 065
  11. PREDONINE [PREDNISOLONE ACETATE] [Concomitant]
     Indication: PROSTATE CANCER
     Dosage: 5 MG, BID
     Route: 048
     Dates: start: 20170203, end: 20180624

REACTIONS (6)
  - Febrile neutropenia [Fatal]
  - Dehydration [Fatal]
  - Pyrexia [Fatal]
  - Diarrhoea [Unknown]
  - Depressed level of consciousness [Fatal]
  - Pneumonia aspiration [Fatal]

NARRATIVE: CASE EVENT DATE: 20180625
